FAERS Safety Report 9918999 (Version 7)
Quarter: 2015Q1

REPORT INFORMATION
  Report Type: Spontaneous
  Country: US (occurrence: US)
  Receive Date: 20140224
  Receipt Date: 20150130
  Transmission Date: 20150721
  Serious: Yes (Hospitalization, Other)
  Sender: FDA-Public Use
  Company Number: US-009507513-1402USA008035

PATIENT
  Sex: Male
  Weight: 82.99 kg

DRUGS (5)
  1. PROSCAR [Suspect]
     Active Substance: FINASTERIDE
     Dosage: UNK
     Route: 048
     Dates: start: 20120328
  2. FINASTERIDE. [Suspect]
     Active Substance: FINASTERIDE
     Indication: BENIGN PROSTATIC HYPERPLASIA
     Dosage: 5 MG, UNK
     Dates: start: 20060626, end: 20081021
  3. PROSCAR [Suspect]
     Active Substance: FINASTERIDE
     Dosage: 5 MG, UNK
     Route: 048
     Dates: start: 20041104, end: 200606
  4. PROSCAR [Suspect]
     Active Substance: FINASTERIDE
     Indication: BENIGN PROSTATIC HYPERPLASIA
     Dosage: 5 MG, UNK
     Route: 048
     Dates: start: 1998, end: 2004
  5. FLOMAX [Concomitant]
     Active Substance: TAMSULOSIN HYDROCHLORIDE
     Indication: BENIGN PROSTATIC HYPERPLASIA
     Dosage: 0.4 MG, UNK
     Dates: start: 2004, end: 2008

REACTIONS (25)
  - Abdominal pain [Unknown]
  - Polycythaemia vera [Unknown]
  - Cataract [Unknown]
  - Insomnia [Not Recovered/Not Resolved]
  - Back pain [Unknown]
  - Urinary retention [Unknown]
  - Prostate cancer recurrent [Unknown]
  - Prostatectomy [Unknown]
  - Polycythaemia [Unknown]
  - Fatigue [Unknown]
  - Surgery [Unknown]
  - Prostate cancer [Not Recovered/Not Resolved]
  - Blood urine present [Unknown]
  - Haematuria [Unknown]
  - Haemorrhage urinary tract [Unknown]
  - Night sweats [Unknown]
  - Abdominal pain lower [Unknown]
  - Appetite disorder [Unknown]
  - Sexual dysfunction [Not Recovered/Not Resolved]
  - Gastrointestinal disorder [Unknown]
  - Gynaecomastia [Unknown]
  - Erectile dysfunction [Recovering/Resolving]
  - Andropause [Unknown]
  - Cystitis radiation [Not Recovered/Not Resolved]
  - Libido decreased [Unknown]

NARRATIVE: CASE EVENT DATE: 20040810
